FAERS Safety Report 4657851-8 (Version None)
Quarter: 2005Q2

REPORT INFORMATION
  Report Type: 
  Country: None (occurrence: None)
  Receive Date: 20050510
  Receipt Date: 20050503
  Transmission Date: 20051028
  Serious: Yes (Other)
  Sender: FDA-Public Use
  Company Number: GB-MERCK-0505GBR00053

PATIENT
  Age: 57 Year
  Sex: Male

DRUGS (6)
  1. ZETIA [Suspect]
     Indication: HYPERCHOLESTEROLAEMIA
     Route: 048
     Dates: start: 20041014, end: 20041019
  2. ASPIRIN [Concomitant]
     Indication: CORONARY ARTERY DISEASE
     Route: 065
  3. ASPIRIN [Concomitant]
     Indication: PROPHYLAXIS
     Route: 065
  4. ATENOLOL [Concomitant]
     Indication: PROPHYLAXIS
     Route: 065
  5. ATENOLOL [Concomitant]
     Indication: CORONARY ARTERY DISEASE
     Route: 065
  6. BENDROFLUMETHIAZIDE [Concomitant]
     Indication: HYPERTENSION
     Route: 065

REACTIONS (2)
  - ARTHRALGIA [None]
  - HAEMATURIA [None]
